FAERS Safety Report 5007834-3 (Version None)
Quarter: 2006Q2

REPORT INFORMATION
  Report Type: 
  Country: None (occurrence: None)
  Receive Date: 20060403
  Receipt Date: 20060103
  Transmission Date: 20061013
  Serious: Yes (Hospitalization)
  Sender: FDA-Public Use
  Company Number: 2006EN000030

PATIENT
  Age: 11 Year
  Sex: Female
  Weight: 30 kg

DRUGS (3)
  1. ONCASPAR [Suspect]
     Indication: ACUTE LYMPHOCYTIC LEUKAEMIA
     Dosage: 2725 IU;IM
     Route: 030
     Dates: start: 20050701, end: 20051214
  2. MARINOL [Concomitant]
  3. VISTARIL [Concomitant]

REACTIONS (8)
  - ANAPHYLACTIC REACTION [None]
  - BLOOD PRESSURE DECREASED [None]
  - DYSPNOEA [None]
  - MENTAL STATUS CHANGES [None]
  - NAUSEA [None]
  - OXYGEN SATURATION DECREASED [None]
  - URTICARIA GENERALISED [None]
  - VOMITING [None]
